FAERS Safety Report 15984424 (Version 1)
Quarter: 2019Q1

REPORT INFORMATION
  Report Type: Spontaneous
  Country: US (occurrence: US)
  Receive Date: 20190219
  Receipt Date: 20190219
  Transmission Date: 20190418
  Serious: Yes (Hospitalization)
  Sender: FDA-Public Use
  Company Number: None

PATIENT
  Sex: Female

DRUGS (7)
  1. ATORVASTATIN, CARVEDILOL, [Concomitant]
  2. ALPRAZOLAM, HYDOCO/APAP, [Concomitant]
  3. CLOPIDOGREL, OMEPRAZOLE, [Concomitant]
  4. DULOXETINE, CARVEDILOL [Concomitant]
  5. ROSUVASTATIN, ASPIRIN-81 [Concomitant]
  6. CYCLODENZAPR, VALACYCLOVIR, [Concomitant]
  7. HUMIRA [Suspect]
     Active Substance: ADALIMUMAB
     Indication: PSORIATIC ARTHROPATHY
     Dosage: ?          OTHER FREQUENCY:EVERY OTHER WEEK;?
     Route: 058
     Dates: start: 20151217

REACTIONS (3)
  - Cerebrovascular accident [None]
  - Myocardial infarction [None]
  - Therapy cessation [None]
